FAERS Safety Report 4283820-6 (Version None)
Quarter: 2004Q1

REPORT INFORMATION
  Report Type: 
  Country: None (occurrence: None)
  Receive Date: 20040130
  Receipt Date: 20040119
  Transmission Date: 20041129
  Serious: Yes (Other)
  Sender: FDA-Public Use
  Company Number: US-JNJFOC-20030604718

PATIENT
  Age: 45 Year
  Sex: Male
  Weight: 98.4306 kg

DRUGS (9)
  1. REMICADE [Suspect]
     Indication: RHEUMATOID ARTHRITIS
     Dosage: 650 MG, 1 IN 1 DAY, INTRAVENOUS
     Route: 042
     Dates: start: 20030609, end: 20030609
  2. REMICADE [Suspect]
     Indication: RHEUMATOID ARTHRITIS
     Dosage: 650 MG, 1 IN 1 DAY, INTRAVENOUS
     Route: 042
     Dates: start: 20010101
  3. CELEBREX [Suspect]
     Dosage: 200 MG, 2 IN 1 DAY
     Dates: end: 20030401
  4. METHOTREXATE [Suspect]
     Dates: end: 20010101
  5. FOLIC ACID [Concomitant]
  6. AMBIEN [Concomitant]
  7. ZYRTEC [Concomitant]
  8. LOPRESSOR [Concomitant]
  9. PREVACID [Concomitant]

REACTIONS (5)
  - DRUG INEFFECTIVE [None]
  - HEPATIC ENZYME INCREASED [None]
  - HEPATOCELLULAR DAMAGE [None]
  - RASH PAPULAR [None]
  - RASH PRURITIC [None]
